FAERS Safety Report 6209216-5 (Version None)
Quarter: 2009Q2

REPORT INFORMATION
  Report Type: 
  Country: None (occurrence: None)
  Receive Date: 20090529
  Receipt Date: 20090519
  Transmission Date: 20091009
  Serious: Yes (Hospitalization)
  Sender: FDA-Public Use
  Company Number: US-JNJFOC-20090506569

PATIENT
  Sex: Female
  Weight: 35.9 kg

DRUGS (4)
  1. INFLIXIMAB [Suspect]
     Indication: CROHN'S DISEASE
     Dosage: ^PAST EXPOSURE^
     Route: 042
  2. 5-AMINOSALICYLIC ACID [Concomitant]
     Route: 048
  3. MERCAPTOPURINE [Concomitant]
  4. HUMIRA [Concomitant]

REACTIONS (1)
  - CROHN'S DISEASE [None]
